FAERS Safety Report 14995364 (Version 1)
Quarter: 2018Q2

REPORT INFORMATION
  Report Type: Spontaneous
  Country: DE (occurrence: DE)
  Receive Date: 20180611
  Receipt Date: 20180611
  Transmission Date: 20180711
  Serious: Yes (Hospitalization, Other)
  Sender: FDA-Public Use
  Company Number: DE-PFIZER INC-2018233086

PATIENT
  Age: 40 Year
  Sex: Female

DRUGS (2)
  1. MORPHINE SULFATE. [Suspect]
     Active Substance: MORPHINE SULFATE
     Dosage: MORE THAN HALF A GRAM
     Route: 058
  2. SCOPOLAMIN [Suspect]
     Active Substance: SCOPOLAMINE
     Dosage: 0.003 G, UNK
     Route: 058

REACTIONS (4)
  - Loss of consciousness [Recovered/Resolved]
  - Pneumonia [Recovered/Resolved]
  - Toxicity to various agents [Recovered/Resolved]
  - Cyanosis [Recovered/Resolved]
